FAERS Safety Report 9759633 (Version 2)
Quarter: 2015Q3

REPORT INFORMATION
  Report Type: Spontaneous
  Country: US (occurrence: US)
  Receive Date: 20131216
  Receipt Date: 20150806
  Transmission Date: 20151125
  Serious: No
  Sender: FDA-Public Use
  Company Number: US-GILEAD-2010-0028470

PATIENT
  Age: 64 Year
  Sex: Female
  Weight: 81.65 kg

DRUGS (20)
  1. FERROUS SULFATE [Concomitant]
     Active Substance: FERROUS SULFATE\FERROUS SULFATE, DRIED
  2. ALENDRONATE [Concomitant]
     Active Substance: ALENDRONATE SODIUM
  3. LYRICA [Concomitant]
     Active Substance: PREGABALIN
  4. CAPTOPRIL. [Concomitant]
     Active Substance: CAPTOPRIL
  5. LETAIRIS [Suspect]
     Active Substance: AMBRISENTAN
     Indication: PULMONARY ARTERIAL HYPERTENSION
     Route: 048
     Dates: start: 20071009
  6. PARACETAMOL/HYDROCODONE BITARTRATE [Concomitant]
  7. METOLAZONE. [Concomitant]
     Active Substance: METOLAZONE
  8. THEOPHYLLINE [Concomitant]
     Active Substance: THEOPHYLLINE ANHYDROUS
  9. MUCINEX [Concomitant]
     Active Substance: GUAIFENESIN
  10. VIAGRA [Concomitant]
     Active Substance: SILDENAFIL CITRATE
  11. FOLIC ACID. [Concomitant]
     Active Substance: FOLIC ACID
  12. ACTONEL [Concomitant]
     Active Substance: RISEDRONATE SODIUM
  13. REVATIO [Concomitant]
     Active Substance: SILDENAFIL CITRATE
  14. ADCIRCA [Concomitant]
     Active Substance: TADALAFIL
  15. LASIX [Concomitant]
     Active Substance: FUROSEMIDE
  16. BUSPIRONE [Concomitant]
     Active Substance: BUSPIRONE HYDROCHLORIDE
  17. PLAQUENIL [Concomitant]
     Active Substance: HYDROXYCHLOROQUINE SULFATE
  18. FLONASE [Concomitant]
     Active Substance: FLUTICASONE PROPIONATE
  19. BECONASE AQ [Concomitant]
     Active Substance: BECLOMETHASONE DIPROPIONATE MONOHYDRATE
  20. PROZAC [Concomitant]
     Active Substance: FLUOXETINE HYDROCHLORIDE

REACTIONS (1)
  - Chest pain [Unknown]
